FAERS Safety Report 9539922 (Version 1)
Quarter: 2013Q3

REPORT INFORMATION
  Report Type: Spontaneous
  Country: US (occurrence: US)
  Receive Date: 20130920
  Receipt Date: 20130920
  Transmission Date: 20140515
  Serious: No
  Sender: FDA-Public Use
  Company Number: US-PURDUE-USA-2011-0068711

PATIENT
  Age: 49 Year
  Sex: Male
  Weight: 78.46 kg

DRUGS (2)
  1. DILAUDID TABLET [Suspect]
     Indication: ARTHRALGIA
     Dosage: UNK
     Dates: start: 201103, end: 201103
  2. LORTAB                             /00607101/ [Concomitant]
     Indication: ARTHRALGIA
     Dosage: UNK
     Dates: start: 201103, end: 201103

REACTIONS (1)
  - Nausea [Recovered/Resolved]
